FAERS Safety Report 8257626-7 (Version None)
Quarter: 2012Q2

REPORT INFORMATION
  Report Type: 
  Country: None (occurrence: None)
  Receive Date: 20120403
  Receipt Date: 20120319
  Transmission Date: 20120825
  Serious: Yes (Other)
  Sender: FDA-Public Use
  Company Number: US-WATSON-2012-04783

PATIENT
  Age: 40 Year
  Sex: Female

DRUGS (2)
  1. EXEMESTANE [Suspect]
     Indication: BREAST CANCER
     Dosage: UNK
     Route: 065
     Dates: start: 20090812, end: 20120102
  2. TRELSTAR [Suspect]
     Indication: BREAST CANCER
     Dosage: 3.75 MG, MONTHLY
     Route: 030
     Dates: start: 20090812, end: 20120102

REACTIONS (1)
  - FRACTURE [None]
